FAERS Safety Report 7279208-6 (Version None)
Quarter: 2011Q1

REPORT INFORMATION
  Report Type: 
  Country: None (occurrence: None)
  Receive Date: 20110207
  Receipt Date: 20110125
  Transmission Date: 20110831
  Serious: Yes (Hospitalization)
  Sender: FDA-Public Use
  Company Number: FR-WATSON-2011-01150

PATIENT
  Sex: Female

DRUGS (1)
  1. MEPROBAMATE [Suspect]
     Indication: OVERDOSE
     Dosage: UNK
     Route: 048

REACTIONS (2)
  - OVERDOSE [None]
  - CIRCULATORY COLLAPSE [None]
